FAERS Safety Report 13005983 (Version 1)
Quarter: 2016Q4

REPORT INFORMATION
  Report Type: Spontaneous
  Country: US (occurrence: US)
  Receive Date: 20161206
  Receipt Date: 20161206
  Transmission Date: 20170207
  Serious: Yes (Other)
  Sender: FDA-Public Use
  Company Number: None

PATIENT
  Age: 14 Year
  Sex: Male
  Weight: 60.5 kg

DRUGS (1)
  1. CYTARABINE. [Suspect]
     Active Substance: CYTARABINE
     Indication: ACUTE MYELOID LEUKAEMIA
     Dosage: 1000 MG/M 2 MILLIGRA(S) SQ. METER   INTRAVENOUS (NOT OTHERWISE SPECIFIED)
     Route: 042
     Dates: start: 20161128, end: 20161203

REACTIONS (9)
  - Dermatitis exfoliative [None]
  - Enlarged uvula [None]
  - Throat tightness [None]
  - Rash [None]
  - Dysphagia [None]
  - Eye swelling [None]
  - Pruritus [None]
  - Pyrexia [None]
  - Skin swelling [None]

NARRATIVE: CASE EVENT DATE: 20161204
